FAERS Safety Report 8918072 (Version 2)
Quarter: 2013Q1

REPORT INFORMATION
  Report Type: Spontaneous
  Country: US (occurrence: US)
  Receive Date: 20121120
  Receipt Date: 20130109
  Transmission Date: 20140127
  Serious: No
  Sender: FDA-Public Use
  Company Number: US-009507513-1211USA005445

PATIENT
  Sex: Female

DRUGS (8)
  1. PEGINTRON [Suspect]
     Indication: HEPATITIS C
     Dosage: 120 MICROGRAM, QW
     Route: 058
     Dates: start: 20121012
  2. RIBAVIRIN [Suspect]
  3. LEVOTHYROXINE SODIUM [Concomitant]
  4. CYANOCOBALAMIN [Concomitant]
  5. SIMVASTATIN [Concomitant]
  6. ASPIRIN [Concomitant]
  7. CITALOPRAM [Concomitant]
  8. TYLENOL [Concomitant]

REACTIONS (5)
  - Asthenia [Recovered/Resolved]
  - Lethargy [Recovered/Resolved]
  - Feeling hot [Recovered/Resolved]
  - Influenza [Recovered/Resolved]
  - Incorrect storage of drug [Unknown]
